FAERS Safety Report 24609343 (Version 1)
Quarter: 2024Q4

REPORT INFORMATION
  Report Type: Spontaneous
  Country: CN (occurrence: CN)
  Receive Date: 20241112
  Receipt Date: 20241112
  Transmission Date: 20250114
  Serious: Yes (Hospitalization)
  Sender: PAREXEL
  Company Number: CN-SHANGHAI JUNSHI BIOSCIENCES CO., LTD.-CN2024011981

PATIENT

DRUGS (4)
  1. TORIPALIMAB [Suspect]
     Active Substance: TORIPALIMAB
     Indication: Nasopharyngeal cancer
     Dosage: 240 MG (D1)
     Route: 041
     Dates: start: 20240310, end: 20240310
  2. GEMCITABINE HYDROCHLORIDE [Suspect]
     Active Substance: GEMCITABINE HYDROCHLORIDE
     Indication: Nasopharyngeal cancer
     Dosage: 1.46 G (D2?D9,Q8D)
     Route: 041
     Dates: start: 20240311, end: 20240318
  3. ENDOSTATIN [Suspect]
     Active Substance: ENDOSTATIN
     Indication: Nasopharyngeal cancer
     Dosage: 22 MG (D2-D8), QD
     Route: 041
     Dates: start: 20240311, end: 20240317
  4. CISPLATIN [Suspect]
     Active Substance: CISPLATIN
     Indication: Nasopharyngeal cancer
     Dosage: 40 MG (D2-D4), QD
     Route: 041
     Dates: start: 20240311, end: 20240313

REACTIONS (1)
  - Myelosuppression [Recovering/Resolving]

NARRATIVE: CASE EVENT DATE: 20240319
